FAERS Safety Report 9232601 (Version 2)
Quarter: 2014Q1

REPORT INFORMATION
  Report Type: Spontaneous
  Country: BR (occurrence: BR)
  Receive Date: 20130416
  Receipt Date: 20140326
  Transmission Date: 20141002
  Serious: Yes (Other)
  Sender: FDA-Public Use
  Company Number: BR-AMGEN-BRASP2011016829

PATIENT
  Age: 58 Year
  Sex: Female
  Weight: 61 kg

DRUGS (14)
  1. ENBREL [Suspect]
     Indication: RHEUMATOID ARTHRITIS
     Dosage: 50 MG EVERY 10 DAYS
     Route: 058
     Dates: start: 201102, end: 201201
  2. ENBREL [Suspect]
     Dosage: 25 MG, EVERY 10 DAYS
     Route: 058
     Dates: start: 201202
  3. ENBREL [Suspect]
     Dosage: 50 MG, QWK
     Route: 058
     Dates: start: 201203
  4. METHOTREXATE SODIUM [Suspect]
     Indication: PRODUCT USED FOR UNKNOWN INDICATION
     Dosage: 10 MG, WEEKLY
     Route: 065
     Dates: start: 201102
  5. PURAN T4 [Concomitant]
     Indication: HYPOTHYROIDISM
     Dosage: 50 MG, 1X/DAY (FASTING)
     Dates: start: 2001
  6. FAMOTIDINE [Concomitant]
     Dosage: 40 MG, UNK
     Dates: start: 201102
  7. VENLAFAXINE [Concomitant]
     Dosage: 40 MG, 2X/DAY
     Dates: start: 2009
  8. NEOSALDINA                         /00631701/ [Concomitant]
     Indication: PAIN
     Dosage: UNK UNK, AS NEEDED
  9. RIVOTRIL [Concomitant]
     Indication: INSOMNIA
     Dosage: 3 DROPS, AS NEEDED
  10. FOLIC ACID [Concomitant]
     Dosage: UNK, WEEKLY
  11. MELOXICAM [Concomitant]
     Dosage: UNK
  12. SERTRALINE [Concomitant]
     Indication: DEPRESSION
     Dosage: 50 MG ONCE A DAY
  13. SIMVASTATIN [Concomitant]
     Dosage: UNK
  14. EXODUS                             /01033301/ [Concomitant]
     Indication: DEPRESSION
     Dosage: 15 MG, 1X/DAY

REACTIONS (14)
  - Dysgeusia [Not Recovered/Not Resolved]
  - Oropharyngeal pain [Recovering/Resolving]
  - Insomnia [Unknown]
  - Memory impairment [Unknown]
  - Arthralgia [Unknown]
  - Pruritus [Unknown]
  - Swelling [Unknown]
  - Dyspnoea [Recovering/Resolving]
  - Local swelling [Not Recovered/Not Resolved]
  - Peripheral coldness [Not Recovered/Not Resolved]
  - Renal cyst [Unknown]
  - Asthenia [Recovering/Resolving]
  - Pain [Recovering/Resolving]
  - Hydronephrosis [Not Recovered/Not Resolved]
